FAERS Safety Report 12100209 (Version 2)
Quarter: 2016Q1

REPORT INFORMATION
  Report Type: Spontaneous
  Country: PH (occurrence: PH)
  Receive Date: 20160222
  Receipt Date: 20160224
  Transmission Date: 20160526
  Serious: Yes (Hospitalization)
  Sender: FDA-Public Use
  Company Number: PH-EISAI MEDICAL RESEARCH-EC-2016-014536

PATIENT
  Age: 2 Year

DRUGS (4)
  1. FYCOMPA [Suspect]
     Active Substance: PERAMPANEL
     Route: 050
     Dates: start: 201601
  2. PHENOBARBITAL. [Concomitant]
     Active Substance: PHENOBARBITAL
     Indication: SEIZURE
     Dosage: UNKNOWN
     Route: 050
  3. FYCOMPA [Suspect]
     Active Substance: PERAMPANEL
     Indication: SEIZURE
     Route: 050
     Dates: start: 201512, end: 201601
  4. TOPIRAMATE. [Concomitant]
     Active Substance: TOPIRAMATE
     Indication: SEIZURE
     Dosage: UNKNOWN
     Route: 050

REACTIONS (4)
  - Salivary hypersecretion [Not Recovered/Not Resolved]
  - Product use issue [Recovered/Resolved]
  - Pneumonia [Recovered/Resolved]
  - Drug administered to patient of inappropriate age [Recovered/Resolved]

NARRATIVE: CASE EVENT DATE: 201601
